FAERS Safety Report 13230647 (Version 1)
Quarter: 2017Q1

REPORT INFORMATION
  Report Type: Spontaneous
  Country: ES (occurrence: ES)
  Receive Date: 20170214
  Receipt Date: 20170214
  Transmission Date: 20170428
  Serious: Yes (Hospitalization)
  Sender: FDA-Public Use
  Company Number: ES-FERRINGPH-2017FE00545

PATIENT

DRUGS (2)
  1. GONAL-F [Concomitant]
     Active Substance: FOLLITROPIN
     Indication: ASSISTED FERTILISATION
     Dosage: UNK
     Route: 065
  2. MENOPUR [Suspect]
     Active Substance: FOLLITROPIN\LUTEINIZING HORMONE
     Dosage: 225 IU, DAILY
     Route: 058
     Dates: start: 20170201, end: 20170202

REACTIONS (5)
  - Tooth loss [Unknown]
  - Pruritus [Unknown]
  - Syncope [Recovered/Resolved]
  - Jaw fracture [Unknown]
  - Fall [Unknown]

NARRATIVE: CASE EVENT DATE: 20170202
